FAERS Safety Report 16362934 (Version 1)
Quarter: 2019Q2

REPORT INFORMATION
  Report Type: Spontaneous
  Country: GB (occurrence: GB)
  Receive Date: 20190528
  Receipt Date: 20190528
  Transmission Date: 20190711
  Serious: Yes (Hospitalization)
  Sender: FDA-Public Use
  Company Number: PHHY2019GB117830

PATIENT
  Age: 71 Year
  Sex: Male

DRUGS (1)
  1. CEFTRIAXONE. [Suspect]
     Active Substance: CEFTRIAXONE
     Indication: INJURY
     Route: 065

REACTIONS (7)
  - Pruritus [Not Recovered/Not Resolved]
  - Decreased appetite [Unknown]
  - Cholestasis [Recovered/Resolved]
  - Jaundice [Unknown]
  - Lethargy [Unknown]
  - Chromaturia [Unknown]
  - Weight decreased [Unknown]
